FAERS Safety Report 10955613 (Version 1)
Quarter: 2015Q1

REPORT INFORMATION
  Report Type: Spontaneous
  Country: US (occurrence: None)
  Receive Date: 20150325
  Receipt Date: 20150325
  Transmission Date: 20150721
  Serious: Yes (Hospitalization)
  Sender: FDA-Public Use
  Company Number: None

PATIENT
  Age: 88 Year
  Sex: Male

DRUGS (3)
  1. DAPTOMYCIN. [Suspect]
     Active Substance: DAPTOMYCIN
     Indication: STAPHYLOCOCCAL BACTERAEMIA
     Dosage: 560 MG OTHER IV
     Route: 042
     Dates: start: 20150110, end: 20150224
  2. DAPTOMYCIN. [Suspect]
     Active Substance: DAPTOMYCIN
     Indication: ENDOCARDITIS
     Dosage: 560 MG OTHER IV
     Route: 042
     Dates: start: 20150110, end: 20150224
  3. DAPTOMYCIN. [Suspect]
     Active Substance: DAPTOMYCIN
     Dosage: 560 MG OTHER IV
     Route: 042
     Dates: start: 20150110, end: 20150224

REACTIONS (4)
  - Toxic epidermal necrolysis [None]
  - Pruritus [None]
  - Stevens-Johnson syndrome [None]
  - Urticaria [None]

NARRATIVE: CASE EVENT DATE: 20150224
